FAERS Safety Report 24362467 (Version 1)
Quarter: 2024Q3

REPORT INFORMATION
  Report Type: Spontaneous
  Country: US (occurrence: US)
  Receive Date: 20240925
  Receipt Date: 20240925
  Transmission Date: 20241017
  Serious: Yes (Other)
  Sender: TEVA
  Company Number: US-TEVA-VS-3244762

PATIENT
  Age: 72 Year
  Sex: Female
  Weight: 59.87 kg

DRUGS (2)
  1. CARTIA XT [Suspect]
     Active Substance: DILTIAZEM HYDROCHLORIDE
     Indication: Hypertension
     Dosage: EXTENDED / SUSTAINED RELEASE
     Route: 065
  2. LOSARTAN [Concomitant]
     Active Substance: LOSARTAN\LOSARTAN POTASSIUM
     Indication: Product used for unknown indication

REACTIONS (5)
  - Hypertension [Recovering/Resolving]
  - Drug ineffective [Unknown]
  - Femur fracture [Unknown]
  - Chest pain [Unknown]
  - Malaise [Unknown]

NARRATIVE: CASE EVENT DATE: 20230101
